FAERS Safety Report 15001209 (Version 1)
Quarter: 2018Q2

REPORT INFORMATION
  Report Type: Spontaneous
  Country: FR (occurrence: FR)
  Receive Date: 20180612
  Receipt Date: 20180612
  Transmission Date: 20180711
  Serious: Yes (Other)
  Sender: FDA-Public Use
  Company Number: FR-NAPPMUNDI-GBR-2018-0056603

PATIENT
  Age: 21 Year
  Sex: Female

DRUGS (12)
  1. MORPHINE SULFATE. [Suspect]
     Active Substance: MORPHINE SULFATE
     Indication: PREMEDICATION
     Dosage: UNK
     Route: 048
  2. DOXORUBICIN [Suspect]
     Active Substance: DOXORUBICIN
     Indication: EWING^S SARCOMA
     Dosage: 50 MG/M2, UNK,FOURTH  COURSE, TWO WEEKS LATER DELIVERY
     Route: 042
  3. GRANISETRON [Suspect]
     Active Substance: GRANISETRON
     Indication: VOMITING
     Dosage: UNK
     Route: 042
  4. HOLOXAN [Suspect]
     Active Substance: IFOSFAMIDE
     Indication: EWING^S SARCOMA
     Dosage: UNK,(ADR-IFX),3 COURSES OF THREE WEEKLY IN THE 27TH, 30TH, AND 33RD WEEK OF GESTATION,STRENGHT 2000M
     Route: 042
  5. GRANISETRON [Suspect]
     Active Substance: GRANISETRON
     Indication: NAUSEA
  6. ETOPOSIDE. [Concomitant]
     Active Substance: ETOPOSIDE
     Indication: EWING^S SARCOMA
     Route: 042
  7. G-CSF [Concomitant]
     Active Substance: GRANULOCYTE COLONY-STIMULATING FACTOR NOS
     Indication: PROPHYLAXIS
     Route: 065
  8. HOLOXAN [Suspect]
     Active Substance: IFOSFAMIDE
     Dosage: UNK,(ADR-IFX),FOURTH COURSE, TWO WEEKS LATER DELIVERY (STRENGHT 2000MG)
     Route: 042
  9. HOLOXAN [Suspect]
     Active Substance: IFOSFAMIDE
     Dosage: UNK (STRENGHT 2000MG)
     Route: 042
  10. MESNA. [Suspect]
     Active Substance: MESNA
     Indication: PRODUCT USED FOR UNKNOWN INDICATION
     Dosage: UNK,3 COURSES OF THREE WEEKLY IN THE 27TH, 30TH, AND 33RD WEEK OF GESTATION
     Route: 042
  11. MESNA. [Suspect]
     Active Substance: MESNA
     Dosage: UNK,FOURTH COURSE, TWO WEEKS LATER DELIVERYUNK
     Route: 042
  12. DOXORUBICIN [Suspect]
     Active Substance: DOXORUBICIN
     Dosage: 50 MG/M2, UNK, 3 COURSES OF THREE WEEKLY IN THE 27TH, 30TH, AND 33RD WEEK OF GESTATION
     Route: 042

REACTIONS (3)
  - Febrile neutropenia [Unknown]
  - Exposure during pregnancy [Recovered/Resolved]
  - Neutropenia [Unknown]
